FAERS Safety Report 6547886 (Version 4)
Quarter: 2012Q4

REPORT INFORMATION
  Report Type: 
  Country: US (occurrence: US)
  Receive Date: 20080128
  Receipt Date: 20121121
  Transmission Date: 20130627
  Serious: Yes (Hospitalization)
  Sender: FDA-Public Use
  Company Number: 2008BI001348

PATIENT
  Age: 57 None
  Sex: Female
  Weight: 74 kg

DRUGS (4)
  1. AVONEX [Suspect]
     Indication: MULTIPLE SCLEROSIS
     Route: 030
     Dates: start: 199605
  2. AVONEX [Suspect]
     Indication: MULTIPLE SCLEROSIS
     Route: 030
  3. AVONEX [Suspect]
     Indication: MULTIPLE SCLEROSIS
     Route: 030
     Dates: start: 20030125
  4. AVONEX [Suspect]
     Indication: MULTIPLE SCLEROSIS
     Route: 030
     Dates: start: 20051028

REACTIONS (17)
  - Gangrene [Recovered/Resolved]
  - Pancreatitis [Recovered/Resolved]
  - Parotitis [Recovered/Resolved]
  - Abdominal pain [Recovered/Resolved]
  - Ventricular tachycardia [Recovered/Resolved]
  - Blood potassium decreased [Unknown]
  - Bradycardia [Recovered/Resolved]
  - Blood pressure immeasurable [Recovered/Resolved]
  - Somnolence [Recovered/Resolved]
  - Electrolyte depletion [Recovered/Resolved]
  - Dehydration [Recovered/Resolved]
  - Diarrhoea [Recovered/Resolved]
  - Multiple sclerosis relapse [Recovered/Resolved]
  - Weight decreased [Not Recovered/Not Resolved]
  - Pain [Recovered/Resolved]
  - Muscle spasticity [Recovered/Resolved]
  - Abdominal adhesions [Recovered/Resolved]
